FAERS Safety Report 7371321-8 (Version None)
Quarter: 2011Q1

REPORT INFORMATION
  Report Type: 
  Country: None (occurrence: None)
  Receive Date: 20110324
  Receipt Date: 20110315
  Transmission Date: 20110831
  Serious: No
  Sender: FDA-Public Use
  Company Number: US-JNJFOC-20110204811

PATIENT
  Sex: Female
  Weight: 55.34 kg

DRUGS (5)
  1. HYDROCODONE BITARTRATE [Concomitant]
     Indication: PAIN
     Route: 048
  2. BENAZEPRIL [Concomitant]
     Indication: HYPERTENSION
     Route: 048
  3. FENTANYL-100 [Suspect]
     Indication: NERVE INJURY
     Dosage: NDC: 0781-7241-55
     Route: 062
  4. FENTANYL-100 [Suspect]
     Indication: BACK PAIN
     Dosage: NDC: 0781-7241-55
     Route: 062
  5. NEURONTIN [Concomitant]
     Indication: NERVE INJURY
     Route: 048

REACTIONS (3)
  - WRONG TECHNIQUE IN DRUG USAGE PROCESS [None]
  - TREATMENT NONCOMPLIANCE [None]
  - PAIN [None]
